FAERS Safety Report 9323226 (Version 3)
Quarter: 2013Q2

REPORT INFORMATION
  Report Type: Spontaneous
  Country: DE (occurrence: DE)
  Receive Date: 20130603
  Receipt Date: 20130627
  Transmission Date: 20140414
  Serious: Yes (Other)
  Sender: FDA-Public Use
  Company Number: DE-009507513-1305DEU010981

PATIENT
  Age: 56 Year
  Sex: Female
  Weight: 50 kg

DRUGS (3)
  1. INTRONA [Suspect]
     Indication: MALIGNANT MELANOMA
     Dosage: STRENGTH: LOW DOSE IFN, 3X3 MIO IU PER WEEK, Q3W
     Route: 042
     Dates: start: 20130325, end: 20130521
  2. MELOXICAM [Concomitant]
     Indication: MYALGIA
     Dosage: 15 MG, QD
     Route: 048
     Dates: start: 20130325, end: 20130327
  3. KATADOLON [Concomitant]
     Indication: MYALGIA
     Dosage: UNK, QPM
     Route: 048
     Dates: start: 20130325, end: 20130329

REACTIONS (6)
  - Drug eruption [Recovered/Resolved]
  - Injection site erythema [Recovered/Resolved]
  - Injection site rash [Recovered/Resolved]
  - Injection site pruritus [Unknown]
  - Rash macular [Unknown]
  - Injection site reaction [Recovered/Resolved]
